FAERS Safety Report 5410764-6 (Version None)
Quarter: 2007Q3

REPORT INFORMATION
  Report Type: 
  Country: None (occurrence: None)
  Receive Date: 20070810
  Receipt Date: 20070731
  Transmission Date: 20080115
  Serious: No
  Sender: FDA-Public Use
  Company Number: A0643706A

PATIENT
  Age: 34 Year
  Sex: Male

DRUGS (2)
  1. PAXIL CR [Suspect]
     Indication: DEPRESSION
     Dosage: 25MG PER DAY
     Route: 048
     Dates: start: 20061201, end: 20070105
  2. ADVIL LIQUI-GELS [Concomitant]

REACTIONS (4)
  - BACK PAIN [None]
  - MYOPIA [None]
  - VISION BLURRED [None]
  - VISUAL ACUITY REDUCED [None]
